FAERS Safety Report 24777909 (Version 1)
Quarter: 2024Q4

REPORT INFORMATION
  Report Type: Spontaneous
  Country: US (occurrence: US)
  Receive Date: 20241226
  Receipt Date: 20241226
  Transmission Date: 20250114
  Serious: No
  Sender: PFIZER
  Company Number: US-PFIZER INC-202400329704

PATIENT
  Sex: Female

DRUGS (1)
  1. PROTONIX [Suspect]
     Active Substance: PANTOPRAZOLE SODIUM
     Indication: Dyspepsia
     Dosage: UNK

REACTIONS (4)
  - Peripheral swelling [Unknown]
  - Swelling face [Unknown]
  - Weight increased [Unknown]
  - Pain in extremity [Unknown]
